FAERS Safety Report 4356244-0 (Version None)
Quarter: 2004Q2

REPORT INFORMATION
  Report Type: 
  Country: None (occurrence: None)
  Receive Date: 20040511
  Receipt Date: 20040423
  Transmission Date: 20050107
  Serious: Yes (Hospitalization)
  Sender: FDA-Public Use
  Company Number: 2004010105

PATIENT
  Age: 49 Year
  Sex: Male
  Weight: 60 kg

DRUGS (20)
  1. VFEND [Suspect]
     Indication: BRONCHOPULMONARY ASPERGILLOSIS
     Dosage: 800 MG (2 IN D), ORAL
     Route: 048
     Dates: start: 20030320, end: 20040127
  2. CYCLOSPORINE [Concomitant]
  3. PREDNISOLONE [Concomitant]
  4. MYCOPHENOLATE MOFETIL [Concomitant]
  5. ACYCLOVIR [Concomitant]
  6. PHENOXYMETHYLPENICILLIN [Concomitant]
  7. CIPROFLOXACIN [Concomitant]
  8. BACTRIM [Concomitant]
  9. URSODEOXYCHOLIC ACID [Concomitant]
  10. LEKOVIT CA (COLECALCIFEROL, CALCIUM CARBONATE) [Concomitant]
  11. IPRATROPIUM BROMIDE [Concomitant]
  12. SERETIDE MITE (FLUTICASONE PROPIONATE, SALMETEROL XINAFOATE) [Concomitant]
  13. ENALAPRIL MALEATE [Concomitant]
  14. HYPROMELLOSE [Concomitant]
  15. FLOXAL EYEDROPS (BENZALKONIUM CHLORIDE, OFLOXACIN) [Concomitant]
  16. POTASSIUM IODIDE [Concomitant]
  17. ACETYLCYSTEINE [Concomitant]
  18. TORSEMIDE [Concomitant]
  19. SODIUM CHLORIDE INJ [Concomitant]
  20. ZOLEDRONIC ACID [Concomitant]

REACTIONS (2)
  - GRAND MAL CONVULSION [None]
  - PSYCHOTIC DISORDER [None]
